FAERS Safety Report 18631183 (Version 1)
Quarter: 2020Q4

REPORT INFORMATION
  Report Type: Spontaneous
  Country: US (occurrence: US)
  Receive Date: 20201217
  Receipt Date: 20201217
  Transmission Date: 20210114
  Serious: Yes (Hospitalization, Other)
  Sender: FDA-Public Use
  Company Number: US-PURDUE-USA-2020-0181916

PATIENT
  Sex: Female

DRUGS (8)
  1. DILAUDID [Suspect]
     Active Substance: HYDROMORPHONE HYDROCHLORIDE
     Indication: BACK PAIN
     Dosage: UNK
     Route: 048
  2. HYDROCODONE BITARTRATE AND ACETAMINOPHEN [Suspect]
     Active Substance: ACETAMINOPHEN\HYDROCODONE BITARTRATE
     Indication: BACK PAIN
     Dosage: UNK
     Route: 048
     Dates: start: 2008
  3. HYDROMORPHONE TABLET (RHODES) [Suspect]
     Active Substance: HYDROMORPHONE
     Indication: BACK PAIN
     Dosage: UNK
     Route: 048
  4. HYDROMORPHONE HCL ORAL SOLUTION (RHODES) [Suspect]
     Active Substance: HYDROMORPHONE HYDROCHLORIDE
     Indication: BACK PAIN
     Dosage: UNK
     Route: 048
  5. BUPRENORPHINE TRANSDERMAL PATCH (SIMILAR TO NDA 21-306) [Suspect]
     Active Substance: BUPRENORPHINE
     Indication: BACK PAIN
     Dosage: UNK
     Route: 062
  6. OXYCODONE HCL TABLETS (91-490) [Suspect]
     Active Substance: OXYCODONE HYDROCHLORIDE
     Indication: BACK PAIN
     Dosage: UNK
     Route: 048
     Dates: start: 2010
  7. OXYCODONE/ ACETAMINOPHEN TABLETS [Suspect]
     Active Substance: ACETAMINOPHEN\OXYCODONE HYDROCHLORIDE
     Indication: BACK PAIN
     Dosage: UNK
     Route: 048
  8. TRAMADOL. [Suspect]
     Active Substance: TRAMADOL
     Indication: BACK PAIN
     Dosage: UNK
     Route: 065

REACTIONS (7)
  - Physical disability [Unknown]
  - Drug dependence [Not Recovered/Not Resolved]
  - Pancreatitis [Recovered/Resolved]
  - Mental impairment [Unknown]
  - Confusional state [Unknown]
  - Fatigue [Unknown]
  - Amnesia [Unknown]

NARRATIVE: CASE EVENT DATE: 2010
